FAERS Safety Report 9804203 (Version 1)
Quarter: 2014Q1

REPORT INFORMATION
  Report Type: Spontaneous
  Country: US (occurrence: None)
  Receive Date: 20140106
  Receipt Date: 20140106
  Transmission Date: 20141002
  Serious: Yes (Other)
  Sender: FDA-Public Use
  Company Number: FK201305609

PATIENT
  Age: 45 Year
  Sex: Female

DRUGS (1)
  1. OXALIPLATIN (MANUFACTURER UNKNOWN) OXALIPLATIN) OXALIIPLATIN) [Suspect]
     Indication: COLORECTAL CANCER METASTATIC

REACTIONS (1)
  - Anaphylactic reaction [None]
